FAERS Safety Report 17322852 (Version 1)
Quarter: 2020Q1

REPORT INFORMATION
  Report Type: Spontaneous
  Country: US (occurrence: US)
  Receive Date: 20200124
  Receipt Date: 20200124
  Transmission Date: 20200409
  Serious: Yes (Disabling)
  Sender: FDA-Public Use
  Company Number: None

PATIENT
  Age: 72 Year
  Sex: Female
  Weight: 58.5 kg

DRUGS (6)
  1. VITAMIN D [Concomitant]
     Active Substance: VITAMIN D NOS
  2. VITAMIN B12 [Concomitant]
     Active Substance: CYANOCOBALAMIN
  3. FLAXSEED [Concomitant]
     Active Substance: FLAX SEED
  4. ROSUVASTATIN TABLETS, USP 5MG [Suspect]
     Active Substance: ROSUVASTATIN CALCIUM
     Indication: BLOOD CHOLESTEROL
     Dosage: ?          QUANTITY:90 TABLET(S);?
     Route: 048
     Dates: start: 20200101, end: 20200114
  5. LORATIDINE [Concomitant]
     Active Substance: LORATADINE
  6. CALCIUM CARBONATE-VIT D3 [Concomitant]

REACTIONS (4)
  - Gait disturbance [None]
  - Myopathy [None]
  - Pain [None]
  - Sleep disorder [None]

NARRATIVE: CASE EVENT DATE: 20200108
